FAERS Safety Report 5550991-0 (Version None)
Quarter: 2007Q4

REPORT INFORMATION
  Report Type: 
  Country: None (occurrence: None)
  Receive Date: 20071212
  Receipt Date: 20071204
  Transmission Date: 20080405
  Serious: Yes (Life-Threatening)
  Sender: FDA-Public Use
  Company Number: JP-MERCK-0712USA01083

PATIENT
  Age: 74 Year
  Sex: Male

DRUGS (11)
  1. ZETIA [Suspect]
     Indication: HYPERCHOLESTEROLAEMIA
     Route: 048
     Dates: start: 20071112, end: 20071122
  2. ACARBOSE [Concomitant]
     Route: 065
     Dates: end: 20071111
  3. GLIMEPIRIDE [Concomitant]
     Route: 065
  4. HALOPERIDOL [Concomitant]
     Route: 065
     Dates: end: 20071121
  5. VALPROATE SODIUM [Concomitant]
     Route: 065
     Dates: end: 20071122
  6. ASPIRIN ALUMINUM [Concomitant]
     Route: 065
     Dates: end: 20071122
  7. DONEPEZIL HYDROCHLORIDE [Concomitant]
     Route: 065
     Dates: end: 20071122
  8. AMLODIPINE BESYLATE [Concomitant]
     Route: 065
     Dates: end: 20071122
  9. GLYBURIDE [Concomitant]
     Route: 065
     Dates: start: 20071112, end: 20071122
  10. CEFOTIAM HYDROCHLORIDE [Concomitant]
     Route: 065
     Dates: start: 20071120, end: 20071121
  11. CEFDINIR [Concomitant]
     Route: 065
     Dates: start: 20071122, end: 20071122

REACTIONS (5)
  - ALTERED STATE OF CONSCIOUSNESS [None]
  - HYPERGLYCAEMIA [None]
  - HYPERNATRAEMIA [None]
  - RENAL FAILURE ACUTE [None]
  - RHABDOMYOLYSIS [None]
